FAERS Safety Report 10277738 (Version 1)
Quarter: 2014Q3

REPORT INFORMATION
  Report Type: Spontaneous
  Country: US (occurrence: US)
  Receive Date: 20140704
  Receipt Date: 20140704
  Transmission Date: 20150326
  Serious: Yes (Other)
  Sender: FDA-Public Use
  Company Number: US-PFIZER INC-2014180368

PATIENT
  Age: 59 Year
  Sex: Female
  Weight: 58.5 kg

DRUGS (2)
  1. LYRICA [Suspect]
     Active Substance: PREGABALIN
     Indication: NEURITIS
     Dosage: 100 MG, DAILY
     Dates: start: 201402, end: 201406
  2. ADVIL [Concomitant]
     Active Substance: IBUPROFEN
     Dosage: 250 MG, UNK

REACTIONS (5)
  - Arthralgia [Not Recovered/Not Resolved]
  - Activities of daily living impaired [Unknown]
  - Rheumatoid arthritis [Unknown]
  - Rheumatoid arthritis [Not Recovered/Not Resolved]
  - Arthritis [Not Recovered/Not Resolved]

NARRATIVE: CASE EVENT DATE: 2014
